FAERS Safety Report 7422856-0 (Version None)
Quarter: 2011Q2

REPORT INFORMATION
  Report Type: 
  Country: None (occurrence: None)
  Receive Date: 20110419
  Receipt Date: 20110408
  Transmission Date: 20111010
  Serious: Yes (Hospitalization, Other)
  Sender: FDA-Public Use
  Company Number: GB-JNJFOC-20110203261

PATIENT
  Sex: Male
  Weight: 83 kg

DRUGS (4)
  1. VIDEX [Concomitant]
     Indication: ANTIRETROVIRAL THERAPY
     Route: 065
  2. ABACAVIR [Concomitant]
     Indication: ANTIRETROVIRAL THERAPY
     Route: 065
  3. PREZISTA [Suspect]
     Indication: HIV INFECTION
     Route: 048
  4. RITONAVIR [Concomitant]

REACTIONS (5)
  - LYMPHADENOPATHY [None]
  - SYSTEMIC LUPUS ERYTHEMATOSUS RASH [None]
  - PYREXIA [None]
  - MYALGIA [None]
  - BACK PAIN [None]
